FAERS Safety Report 7164441-4 (Version None)
Quarter: 2010Q4

REPORT INFORMATION
  Report Type: 
  Country: None (occurrence: None)
  Receive Date: 20101215
  Receipt Date: 20101213
  Transmission Date: 20110411
  Serious: Yes (Other)
  Sender: FDA-Public Use
  Company Number: DE-TEVA-259388GER

PATIENT
  Age: 81 Year
  Sex: Female

DRUGS (3)
  1. DOXEPIN (DOXEPIN-RATIOPHARM) [Suspect]
     Route: 048
  2. HYDROCHLOROTHIAZIDE [Concomitant]
  3. RAMIPRIL [Concomitant]

REACTIONS (1)
  - HYPONATRAEMIA [None]
